FAERS Safety Report 8772983 (Version 1)
Quarter: 2012Q4

REPORT INFORMATION
  Report Type: 
  Country: DK (occurrence: DK)
  Receive Date: 20120907
  Receipt Date: 20120907
  Transmission Date: 20130627
  Serious: Yes (Death, Hospitalization)
  Sender: FDA-Public Use
  Company Number: PHHY2012DK076444

PATIENT
  Age: 54 Year
  Sex: Male

DRUGS (4)
  1. CICLOSPORIN [Suspect]
     Indication: LUNG TRANSPLANT
  2. AZATHIOPRINE [Concomitant]
     Indication: IMMUNOSUPPRESSION
  3. PREDNISOLONE [Concomitant]
     Indication: IMMUNOSUPPRESSION
  4. EVEROLIMUS [Concomitant]
     Indication: IMMUNOSUPPRESSION

REACTIONS (13)
  - Azotaemia [Fatal]
  - Papilloma viral infection [Unknown]
  - Respiratory tract infection [Unknown]
  - Leukopenia [Unknown]
  - Obliterative bronchiolitis [Unknown]
  - Squamous cell carcinoma of lung [Unknown]
  - Lung infiltration [Unknown]
  - Renal failure [Unknown]
  - Glomerular filtration rate decreased [Unknown]
  - Basal cell carcinoma [Unknown]
  - Sweat gland tumour [Unknown]
  - Salivary gland neoplasm [Unknown]
  - Acarodermatitis [Unknown]
